FAERS Safety Report 20492842 (Version 5)
Quarter: 2023Q2

REPORT INFORMATION
  Report Type: Other
  Country: US (occurrence: None)
  Receive Date: 20220219
  Receipt Date: 20230425
  Transmission Date: 20230721
  Serious: Yes (Other)
  Sender: FDA-Public Use
  Company Number: US-ROCHE-3028936

PATIENT
  Age: 49 Year
  Sex: Female
  Weight: 48.578 kg

DRUGS (5)
  1. OCREVUS [Suspect]
     Active Substance: OCRELIZUMAB
     Indication: Multiple sclerosis
     Route: 042
     Dates: start: 201905, end: 202109
  2. OCREVUS [Suspect]
     Active Substance: OCRELIZUMAB
     Indication: Relapsing-remitting multiple sclerosis
     Dosage: 300 MG/10 ML
     Route: 042
     Dates: start: 202001
  3. VAGIFEM [Concomitant]
     Active Substance: ESTRADIOL
     Route: 067
  4. PFIZER-BIONTECH COVID-19 VACCINE [Concomitant]
     Active Substance: TOZINAMERAN
     Dosage: NEXT DOSE APR/2021 AND BOOSTER DOSE AUG/2021
     Dates: start: 202103
  5. EVUSHELD [Concomitant]
     Active Substance: CILGAVIMAB\TIXAGEVIMAB
     Indication: Immunodeficiency
     Dosage: NEXT DOSE MAR/2022
     Dates: start: 202202

REACTIONS (7)
  - Pneumonia [Recovered/Resolved]
  - Pulmonary embolism [Not Recovered/Not Resolved]
  - COVID-19 [Recovered/Resolved]
  - Off label use [Unknown]
  - Anaemia [Recovered/Resolved]
  - Menopause [Not Recovered/Not Resolved]
  - SARS-CoV-2 antibody test negative [Recovered/Resolved]

NARRATIVE: CASE EVENT DATE: 20211201
